FAERS Safety Report 11231387 (Version 3)
Quarter: 2015Q4

REPORT INFORMATION
  Report Type: Spontaneous
  Country: IT (occurrence: IT)
  Receive Date: 20150701
  Receipt Date: 20151130
  Transmission Date: 20160304
  Serious: Yes (Hospitalization)
  Sender: FDA-Public Use
  Company Number: IT-PFIZER INC-2015215663

PATIENT
  Age: 58 Year
  Sex: Female

DRUGS (4)
  1. DELORAZEPAM [Suspect]
     Active Substance: DELORAZEPAM
     Dosage: 1 DF, TOTAL DOSE
     Route: 048
     Dates: start: 20150503, end: 20150503
  2. ZOLPIDEM [Suspect]
     Active Substance: ZOLPIDEM\ZOLPIDEM TARTRATE
     Dosage: 1 DF, TOTAL DOSE
     Route: 048
     Dates: start: 20150503, end: 20150503
  3. LORMETAZEPAM [Suspect]
     Active Substance: LORMETAZEPAM
     Dosage: 1 DF, TOTAL DOSE
     Route: 048
     Dates: start: 20150503, end: 20150503
  4. TRIAZOLAM. [Suspect]
     Active Substance: TRIAZOLAM
     Dosage: 1 DF, TOTAL DOSE
     Route: 048
     Dates: start: 20150503, end: 20150503

REACTIONS (4)
  - Intentional self-injury [Recovering/Resolving]
  - Suicide attempt [Recovering/Resolving]
  - Sopor [Recovering/Resolving]
  - Poisoning [Recovering/Resolving]

NARRATIVE: CASE EVENT DATE: 20150503
